FAERS Safety Report 9370105 (Version 3)
Quarter: 2013Q3

REPORT INFORMATION
  Report Type: Spontaneous
  Country: US (occurrence: None)
  Receive Date: 20130621
  Receipt Date: 20130805
  Transmission Date: 20140515
  Serious: Yes (Other)
  Sender: FDA-Public Use
  Company Number: 2013AP006080

PATIENT
  Age: 66 Year
  Sex: Female

DRUGS (4)
  1. OMEPRAZOLE DELAYED-RELEASE [Suspect]
     Indication: ASTHMA
     Dosage: 40 MG BID PO.
     Route: 048
     Dates: start: 20130416, end: 20130420
  2. SALBUTAMOL [Concomitant]
  3. CLONAZEPAM [Concomitant]
  4. AMBIEN [Concomitant]

REACTIONS (8)
  - Swelling face [None]
  - Hypersensitivity [None]
  - Dyspnoea [None]
  - Eye swelling [None]
  - Local swelling [None]
  - Oesophageal operation [None]
  - Drug withdrawal syndrome [None]
  - Mood swings [None]
